FAERS Safety Report 23802572 (Version 2)
Quarter: 2025Q1

REPORT INFORMATION
  Report Type: Spontaneous
  Country: US (occurrence: US)
  Receive Date: 20240501
  Receipt Date: 20250108
  Transmission Date: 20250409
  Serious: Yes (Other)
  Sender: Kilitch Healthcare
  Company Number: US-KHC-000004

PATIENT

DRUGS (1)
  1. POLYVINYL ALCOHOL [Suspect]
     Active Substance: POLYVINYL ALCOHOL
     Indication: Product used for unknown indication
     Route: 065

REACTIONS (7)
  - Inadequate aseptic technique in manufacturing of product [Unknown]
  - Recalled product [Unknown]
  - Recalled product administered [Unknown]
  - Vision blurred [Unknown]
  - Visual impairment [Unknown]
  - Therapy cessation [Unknown]
  - Product contamination microbial [Unknown]
